FAERS Safety Report 9082619 (Version 1)
Quarter: 2013Q1

REPORT INFORMATION
  Report Type: Spontaneous
  Country: US (occurrence: US)
  Receive Date: 20130131
  Receipt Date: 20130131
  Transmission Date: 20140127
  Serious: No
  Sender: FDA-Public Use
  Company Number: US-ABBOTT-12P-163-0991274-00

PATIENT
  Sex: Female
  Weight: 57.2 kg

DRUGS (1)
  1. HUMIRA [Suspect]
     Indication: CROHN^S DISEASE
     Route: 058
     Dates: start: 201204, end: 201209

REACTIONS (4)
  - Device malfunction [Unknown]
  - Injection site pruritus [Not Recovered/Not Resolved]
  - Injection site rash [Recovering/Resolving]
  - Incorrect dose administered [Unknown]
